FAERS Safety Report 9734367 (Version 2)
Quarter: 2013Q4

REPORT INFORMATION
  Report Type: Spontaneous
  Country: IT (occurrence: IT)
  Receive Date: 20131206
  Receipt Date: 20131212
  Transmission Date: 20140711
  Serious: Yes (Hospitalization)
  Sender: FDA-Public Use
  Company Number: IT-ROCHE-1312722

PATIENT
  Age: 68 Year
  Sex: Male

DRUGS (7)
  1. BONVIVA [Suspect]
     Indication: OSTEOPOROSIS PROPHYLAXIS
     Route: 048
     Dates: start: 20121201
  2. DELTACORTENE [Suspect]
     Indication: SYSTEMIC SCLEROSIS
     Route: 048
     Dates: start: 20121201
  3. RAMIPRIL [Concomitant]
     Indication: HYPERTENSION
  4. PANTOPRAZOLE [Concomitant]
     Indication: PROPHYLAXIS AGAINST GASTROINTESTINAL ULCER
  5. COLECALCIFEROLO [Concomitant]
     Indication: OSTEOPOROSIS PROPHYLAXIS
  6. ENDOXAN BAXTER [Concomitant]
     Indication: SYSTEMIC SCLEROSIS
  7. LERCADIP [Concomitant]
     Indication: HYPERTENSION

REACTIONS (1)
  - Pubis fracture [Recovered/Resolved]
